FAERS Safety Report 7762708-X (Version None)
Quarter: 2011Q3

REPORT INFORMATION
  Report Type: 
  Country: None (occurrence: None)
  Receive Date: 20110920
  Receipt Date: 20110914
  Transmission Date: 20111222
  Serious: Yes (Other)
  Sender: FDA-Public Use
  Company Number: FR-PFIZER INC-2011156712

PATIENT
  Age: 62 Year
  Sex: Male
  Weight: 51 kg

DRUGS (3)
  1. LYRICA [Suspect]
     Indication: PAIN
     Dosage: UNK
     Dates: start: 20110101, end: 20110426
  2. ACETAMINOPHEN [Concomitant]
     Dosage: AS NEEDED
  3. LYRICA [Suspect]
     Indication: NEUROPATHY PERIPHERAL
     Dosage: 150 MG, 2X/DAY
     Route: 048
     Dates: start: 20070828

REACTIONS (7)
  - ABDOMINAL PAIN UPPER [None]
  - PALPITATIONS [None]
  - CHEST PAIN [None]
  - ASTHENIA [None]
  - DECREASED APPETITE [None]
  - NEUTROPENIA [None]
  - DYSPNOEA [None]
